FAERS Safety Report 6032663-1 (Version None)
Quarter: 2009Q1

REPORT INFORMATION
  Report Type: 
  Country: None (occurrence: None)
  Receive Date: 20090109
  Receipt Date: 20090106
  Transmission Date: 20090719
  Serious: Yes (Hospitalization)
  Sender: FDA-Public Use
  Company Number: PHHO2007MX11393

PATIENT
  Sex: Male

DRUGS (2)
  1. TEGRETOL [Suspect]
     Indication: HALLUCINATION
     Dosage: 4 TABLETS (200MG)/DAY
     Route: 048
     Dates: start: 20070601
  2. TEGRETOL [Suspect]
     Indication: AGGRESSION

REACTIONS (1)
  - AGGRESSION [None]
